FAERS Safety Report 24459152 (Version 1)
Quarter: 2024Q4

REPORT INFORMATION
  Report Type: Spontaneous
  Country: US (occurrence: None)
  Receive Date: 20241017
  Receipt Date: 20241017
  Transmission Date: 20250114
  Serious: Yes (Hospitalization)
  Sender: Public
  Company Number: None

PATIENT
  Age: 60 Year
  Sex: Male
  Weight: 71 kg

DRUGS (2)
  1. PEMBROLIZUMAB [Suspect]
     Active Substance: PEMBROLIZUMAB
     Indication: Neoplasm malignant
     Dates: start: 20240405, end: 20240405
  2. AMOXICILLIN\CLAVULANATE POTASSIUM [Suspect]
     Active Substance: AMOXICILLIN\CLAVULANATE POTASSIUM
     Dosage: FREQUENCY : TWICE A DAY;?

REACTIONS (5)
  - Infection in an immunocompromised host [None]
  - Acute kidney injury [None]
  - Drug eruption [None]
  - Tracheitis [None]
  - Adverse drug reaction [None]

NARRATIVE: CASE EVENT DATE: 20240426
